FAERS Safety Report 5439539-9 (Version None)
Quarter: 2007Q3

REPORT INFORMATION
  Report Type: 
  Country: None (occurrence: None)
  Receive Date: 20070831
  Receipt Date: 20070824
  Transmission Date: 20080115
  Serious: No
  Sender: FDA-Public Use
  Company Number: A0675053A

PATIENT
  Sex: Female

DRUGS (1)
  1. ALLI [Suspect]
     Route: 048

REACTIONS (6)
  - DIZZINESS [None]
  - FEELING HOT [None]
  - MENSTRUATION IRREGULAR [None]
  - OBSESSIVE THOUGHTS [None]
  - PALPITATIONS [None]
  - PREMENSTRUAL SYNDROME [None]
